FAERS Safety Report 5321862-X (Version None)
Quarter: 2007Q2

REPORT INFORMATION
  Report Type: 
  Country: None (occurrence: None)
  Receive Date: 20070510
  Receipt Date: 20070430
  Transmission Date: 20071010
  Serious: Yes (Other)
  Sender: FDA-Public Use
  Company Number: CA-ABBOTT-07P-028-0366694-00

PATIENT
  Age: 20 Year
  Sex: Female

DRUGS (1)
  1. BIAXIN XL [Suspect]
     Indication: LUNG INFECTION
     Route: 048

REACTIONS (1)
  - HYPOAESTHESIA FACIAL [None]
